FAERS Safety Report 22332072 (Version 2)
Quarter: 2025Q2

REPORT INFORMATION
  Report Type: Report from Study
  Country: US (occurrence: US)
  Receive Date: 20230517
  Receipt Date: 20250623
  Transmission Date: 20250716
  Serious: Yes (Hospitalization)
  Sender: TAKEDA
  Company Number: US-TAKEDA-2023TUS043601

PATIENT
  Sex: Female

DRUGS (3)
  1. ECALLANTIDE [Suspect]
     Active Substance: ECALLANTIDE
     Indication: Immune system disorder
  2. ECALLANTIDE [Suspect]
     Active Substance: ECALLANTIDE
  3. TAKHZYRO [Suspect]
     Active Substance: LANADELUMAB-FLYO
     Indication: Hereditary angioedema

REACTIONS (2)
  - Hereditary angioedema [Recovered/Resolved]
  - Respiratory tract infection viral [Unknown]
